FAERS Safety Report 10693246 (Version 1)
Quarter: 2015Q1

REPORT INFORMATION
  Report Type: Report from Study
  Country: FR (occurrence: FR)
  Receive Date: 20150106
  Receipt Date: 20150106
  Transmission Date: 20150720
  Serious: Yes (Hospitalization)
  Sender: FDA-Public Use
  Company Number: FR-SA-2015SA000405

PATIENT
  Age: 64 Year
  Sex: Male

DRUGS (15)
  1. TAZOCILLINE [Concomitant]
     Active Substance: PIPERACILLIN SODIUM\TAZOBACTAM SODIUM
     Indication: LUNG NEOPLASM MALIGNANT
     Dosage: IV VIAL
     Route: 042
     Dates: start: 20140919
  2. DOCETAXEL. [Suspect]
     Active Substance: DOCETAXEL
     Indication: LUNG NEOPLASM MALIGNANT
     Dosage: FORM INFUSION
     Route: 042
     Dates: start: 20141010
  3. VELMETIA [Concomitant]
     Active Substance: METFORMIN\SITAGLIPTIN
     Dosage: 100MG/2000MG
     Dates: start: 2004
  4. GLIMEPIRIDE. [Concomitant]
     Active Substance: GLIMEPIRIDE
     Dates: start: 2012
  5. DOCETAXEL. [Suspect]
     Active Substance: DOCETAXEL
     Indication: LUNG NEOPLASM MALIGNANT
     Dosage: FORM INFUSION
     Route: 042
     Dates: start: 20140919
  6. ENOXAPARIN SODIUM. [Concomitant]
     Active Substance: ENOXAPARIN SODIUM
  7. TAZOCILLINE [Concomitant]
     Active Substance: PIPERACILLIN SODIUM\TAZOBACTAM SODIUM
     Indication: LUNG NEOPLASM MALIGNANT
     Dosage: IV VIAL
     Route: 042
     Dates: start: 20140924, end: 20141001
  8. AMINOSIDINE [Concomitant]
     Indication: LUNG NEOPLASM MALIGNANT
     Dates: start: 20141010
  9. SOLUPRED [Concomitant]
     Active Substance: PREDNISOLONE
     Dates: start: 20140915
  10. CIFLOX [Concomitant]
     Active Substance: CIPROFLOXACIN
     Indication: LUNG NEOPLASM MALIGNANT
     Dosage: STRENGTH: 400 MG
     Route: 048
     Dates: start: 20140919, end: 20141001
  11. CIFLOX [Concomitant]
     Active Substance: CIPROFLOXACIN
     Indication: LUNG NEOPLASM MALIGNANT
     Route: 048
     Dates: start: 20141010
  12. AMINOSIDINE [Concomitant]
     Indication: LUNG NEOPLASM MALIGNANT
     Dosage: IV VIAL
     Dates: start: 20140919
  13. KEPPRA [Concomitant]
     Active Substance: LEVETIRACETAM
     Dosage: 500 MG
     Dates: start: 201307
  14. AMPHOTERICIN B. [Concomitant]
     Active Substance: AMPHOTERICIN B
  15. RACECADOTRIL [Concomitant]
     Active Substance: RACECADOTRIL
     Dates: start: 20141013

REACTIONS (2)
  - Febrile neutropenia [Recovered/Resolved]
  - Inflammation [Recovered/Resolved]

NARRATIVE: CASE EVENT DATE: 20140922
